FAERS Safety Report 5521028-4 (Version None)
Quarter: 2007Q4

REPORT INFORMATION
  Report Type: 
  Country: None (occurrence: None)
  Receive Date: 20071119
  Receipt Date: 20071114
  Transmission Date: 20080405
  Serious: Yes (Death)
  Sender: FDA-Public Use
  Company Number: US-MERCK-0711USA00547

PATIENT
  Age: 56 Year
  Sex: Male

DRUGS (1)
  1. CRIXIVAN [Suspect]
     Route: 048

REACTIONS (1)
  - DEATH [None]
